FAERS Safety Report 14352362 (Version 2)
Quarter: 2021Q4

REPORT INFORMATION
  Report Type: Report from Study
  Country: FR (occurrence: FR)
  Receive Date: 20180104
  Receipt Date: 20211020
  Transmission Date: 20220303
  Serious: Yes (Hospitalization, Other)
  Sender: FDA-Public Use
  Company Number: FR-SHIRE-2017BLT005209

PATIENT
  Age: 10 Year
  Sex: Female
  Weight: 41 kg

DRUGS (23)
  1. METHOTREXATE [Suspect]
     Active Substance: METHOTREXATE
     Indication: Acute lymphocytic leukaemia
     Dosage: 12 MILLIGRAM, QD (12 MG, 1X/DAY:QD)
     Route: 037
     Dates: start: 20170413, end: 20170511
  2. METHOTREXATE [Suspect]
     Active Substance: METHOTREXATE
     Dosage: 15 MILLIGRAM (15 MG, ONE DOSE)
     Route: 037
     Dates: start: 20170511, end: 20170511
  3. MERCAPTOPURINE [Suspect]
     Active Substance: MERCAPTOPURINE
     Indication: Acute lymphocytic leukaemia
     Dosage: 65 MILLIGRAM, QD- (65 MG, 1X/DAY:QD, (D10-D21, D29-D42))
     Route: 048
     Dates: start: 20170412, end: 20170524
  4. PEGASPARGASE [Suspect]
     Active Substance: PEGASPARGASE
     Indication: Acute lymphocytic leukaemia
     Dosage: 1615 INTERNATIONAL UNIT (1615 IU, ONE DOSE)
     Route: 042
     Dates: start: 20170419, end: 20170419
  5. PEGASPARGASE [Suspect]
     Active Substance: PEGASPARGASE
     Dosage: 1615 INTERNATIONAL UNIT (1615 IU, ONE DOSE)
     Route: 042
     Dates: start: 20170518, end: 20170518
  6. VINCRISTINE [Suspect]
     Active Substance: VINCRISTINE
     Indication: Acute lymphocytic leukaemia
     Dosage: 1.9 MILLIGRAM (1.9 MG, UNK)
     Route: 042
     Dates: start: 20170412, end: 20170412
  7. VINCRISTINE [Suspect]
     Active Substance: VINCRISTINE
     Dosage: 1.9 MILLIGRAM, QD (1.9 MG, 1X/DAY:QD)
     Route: 042
     Dates: start: 20170518, end: 20170518
  8. DEXAMETHASONE [Suspect]
     Active Substance: DEXAMETHASONE
     Indication: Acute lymphocytic leukaemia
     Dosage: 7.7 MILLIGRAM, QD (7.7 MG, 1X/DAY:QD (D1-D5, D29-D33))
     Route: 048
     Dates: start: 20170412, end: 20170516
  9. TRIMEBUTINE MALEATE [Concomitant]
     Active Substance: TRIMEBUTINE MALEATE
     Indication: Abdominal pain
     Dosage: UNK
  10. ALIZAPRIDE HYDROCHLORIDE [Concomitant]
     Active Substance: ALIZAPRIDE HYDROCHLORIDE
     Indication: Nausea
     Dosage: UNK
  11. CEFTRIAXONE SODIUM [Concomitant]
     Active Substance: CEFTRIAXONE SODIUM
     Indication: Pyrexia
     Dosage: UNK
  12. NUBAIN [Concomitant]
     Active Substance: NALBUPHINE HYDROCHLORIDE
     Indication: Pain
     Dosage: UNK
  13. NUBAIN [Concomitant]
     Active Substance: NALBUPHINE HYDROCHLORIDE
     Indication: Premedication
  14. VANCOMYCIN [Concomitant]
     Active Substance: VANCOMYCIN
     Indication: Pyrexia
     Dosage: UNK
  15. BACTRIM [Concomitant]
     Active Substance: SULFAMETHOXAZOLE\TRIMETHOPRIM
     Indication: Prophylaxis
     Dosage: UNK
  16. VITAMIN K [Concomitant]
     Active Substance: PHYTONADIONE
     Indication: Product used for unknown indication
     Dosage: UNK
  17. FASTURTEC [Concomitant]
     Active Substance: RASBURICASE
     Indication: Hyperuricaemia
     Dosage: UNK
  18. ANTITHROMBIN III HUMAN [Concomitant]
     Active Substance: ANTITHROMBIN III HUMAN
     Indication: Anti-thrombin antibody
     Dosage: UNK
  19. ATARAX [Concomitant]
     Active Substance: HYDROXYZINE HYDROCHLORIDE
     Indication: Premedication
     Dosage: UNK
  20. EUPANTOL [Concomitant]
     Active Substance: PANTOPRAZOLE SODIUM
     Indication: Dyspepsia
     Dosage: UNK
  21. ONDANSETRON [Concomitant]
     Active Substance: ONDANSETRON
     Indication: Nausea
     Dosage: UNK
  22. PERFALGAN [Concomitant]
     Active Substance: ACETAMINOPHEN
     Indication: Pain
     Dosage: UNK
  23. PERFALGAN [Concomitant]
     Active Substance: ACETAMINOPHEN
     Indication: Pyrexia

REACTIONS (3)
  - Cerebral ischaemia [Recovered/Resolved]
  - Superior sagittal sinus thrombosis [Recovered/Resolved]
  - Transverse sinus thrombosis [Recovered/Resolved]

NARRATIVE: CASE EVENT DATE: 20170524
